FAERS Safety Report 11243766 (Version 1)
Quarter: 2015Q3

REPORT INFORMATION
  Report Type: Spontaneous
  Country: BR (occurrence: BR)
  Receive Date: 20150707
  Receipt Date: 20150707
  Transmission Date: 20151125
  Serious: Yes (Death, Hospitalization, Other)
  Sender: FDA-Public Use
  Company Number: BR-OTSUKA-2015_004895

PATIENT
  Age: 91 Year
  Sex: Female

DRUGS (7)
  1. DACOGEN [Suspect]
     Active Substance: DECITABINE
     Dosage: 20 MG/M2, 1 IN 1 DAY
     Route: 042
     Dates: start: 20120820
  2. DACOGEN [Suspect]
     Active Substance: DECITABINE
     Indication: ACUTE MYELOID LEUKAEMIA
     Dosage: 20 MG/M2,1 IN 1 DAY FOR 5 DAYS FROM DAY 1 TO DAY 5
     Route: 042
     Dates: start: 20120621
  3. DACOGEN [Suspect]
     Active Substance: DECITABINE
     Dosage: 20 MG/M2, 1 IN 1 DAY
     Route: 042
     Dates: start: 20121001
  4. DACOGEN [Suspect]
     Active Substance: DECITABINE
     Dosage: 15 MG/M2, 1 IN 1 DAY
     Route: 042
     Dates: start: 20130311
  5. DACOGEN [Suspect]
     Active Substance: DECITABINE
     Dosage: 15 MG/M2, 1 IN 1 DAY
     Route: 042
     Dates: start: 20130415
  6. DACOGEN [Suspect]
     Active Substance: DECITABINE
     Dosage: 15 MG/M2, 1 IN 1 DAY
     Route: 042
     Dates: start: 20121126
  7. DACOGEN [Suspect]
     Active Substance: DECITABINE
     Dosage: 15 MG/M2, 1 IN 1 DAY
     Route: 042
     Dates: start: 20130128

REACTIONS (8)
  - Oesophageal ulcer [Recovered/Resolved]
  - Febrile neutropenia [Recovered/Resolved]
  - Neutropenia [Unknown]
  - Erosive duodenitis [Recovered/Resolved]
  - Acute myeloid leukaemia [Fatal]
  - Mucosal inflammation [Recovered/Resolved]
  - Thrombocytopenia [Unknown]
  - Gastritis [Recovered/Resolved]
